FAERS Safety Report 10249973 (Version 1)
Quarter: 2014Q2

REPORT INFORMATION
  Report Type: Spontaneous
  Country: IL (occurrence: IL)
  Receive Date: 20140620
  Receipt Date: 20140620
  Transmission Date: 20141212
  Serious: Yes (Hospitalization, Other)
  Sender: FDA-Public Use
  Company Number: IL-ROXANE LABORATORIES, INC.-2014-RO-00937RO

PATIENT
  Age: 38 Year
  Sex: Female

DRUGS (1)
  1. METHOTREXATE [Suspect]
     Indication: PSORIATIC ARTHROPATHY
     Route: 065

REACTIONS (5)
  - Varicella zoster pneumonia [Recovered/Resolved]
  - Herpes zoster disseminated [Recovered/Resolved]
  - Thrombocytopenia [Unknown]
  - Hyponatraemia [Unknown]
  - Hypoxia [Recovered/Resolved]
